FAERS Safety Report 21835193 (Version 1)
Quarter: 2023Q1

REPORT INFORMATION
  Report Type: Spontaneous
  Country: HU (occurrence: HU)
  Receive Date: 20230109
  Receipt Date: 20230109
  Transmission Date: 20230418
  Serious: Yes (Other)
  Sender: FDA-Public Use
  Company Number: HU-002147023-NVSC2023HU002081

PATIENT
  Sex: Female
  Weight: 2.45 kg

DRUGS (8)
  1. FEMARA [Suspect]
     Active Substance: LETROZOLE
     Indication: Foetal exposure during pregnancy
     Dosage: MATERNAL EXPOSURE BEFORE PREGNANCY: 2 X 2.5 MG (BETWEEN 2-6 DAYS OF THE CYCLE)
     Route: 064
  2. FOLLITROPIN\LUTROPIN ALFA [Suspect]
     Active Substance: FOLLITROPIN\LUTROPIN ALFA
     Indication: Foetal exposure during pregnancy
     Dosage: MATERNAL EXPOSURE BEFORE PREGNANCY: 150 IU FSH PLUS 75 IU LH (ON DAYS 2, 4 AND 6 OF THE CYCLE)
     Route: 064
  3. FOLLITROPIN\LUTROPIN ALFA [Suspect]
     Active Substance: FOLLITROPIN\LUTROPIN ALFA
     Dosage: MATERNAL EXPOSURE BEFORE PREGNANCY: AN ADDITIONAL 1 VIAL ON DAYS 10, 11 AND 12 OF THE CYCLE
     Route: 064
  4. CETROTIDE [Suspect]
     Active Substance: CETRORELIX ACETATE
     Indication: Foetal exposure during pregnancy
     Dosage: MATERNAL EXPOSURE BEFORE PREGNANCY: 1 INJECTION ON DAYS 11 AND 12
     Route: 064
  5. TRIPTORELIN ACETATE [Suspect]
     Active Substance: TRIPTORELIN ACETATE
     Indication: Foetal exposure during pregnancy
     Dosage: MATERNAL EXPOSURE BEFORE PREGNANCY: 2 AMPOULES OF TRIPTORELIN 0.1 MG/ML INJECTED
     Route: 064
  6. BROMOCRIPTINE MESYLATE [Suspect]
     Active Substance: BROMOCRIPTINE MESYLATE
     Indication: Foetal exposure during pregnancy
     Dosage: MATERNAL EXPOSURE BEFORE PREGNANCY: 2.5 MG IN EVENING
     Route: 064
  7. CRINONE [Suspect]
     Active Substance: PROGESTERONE
     Indication: Foetal exposure during pregnancy
     Dosage: MATERNAL EXPOSURE BEFORE PREGNANCY: 80 MG/G IN THE MORNING
     Route: 064
  8. UTROGESTAN [Suspect]
     Active Substance: PROGESTERONE
     Indication: Foetal exposure during pregnancy
     Dosage: MATERNAL EXPOSURE BEFORE PREGNANCY: 3 X 100 MG IN THE EVENING
     Route: 064

REACTIONS (3)
  - Low birth weight baby [Unknown]
  - Premature baby [Unknown]
  - Foetal exposure during pregnancy [Unknown]

NARRATIVE: CASE EVENT DATE: 20171001
